FAERS Safety Report 24756868 (Version 1)
Quarter: 2024Q4

REPORT INFORMATION
  Report Type: Spontaneous
  Country: GB (occurrence: GB)
  Receive Date: 20241220
  Receipt Date: 20241220
  Transmission Date: 20250115
  Serious: Yes (Death, Other)
  Sender: NOVITIUM PHARMA
  Company Number: GB-NOVITIUMPHARMA-2024GBNVP02915

PATIENT
  Age: 22 Year
  Sex: Male

DRUGS (5)
  1. LIDOCAINE HYDROCHLORIDE [Suspect]
     Active Substance: LIDOCAINE HYDROCHLORIDE
     Indication: Product used for unknown indication
  2. KETAMINE [Concomitant]
     Active Substance: KETAMINE
     Indication: Product used for unknown indication
  3. 25I-NBOME [Concomitant]
     Active Substance: 25I-NBOME
     Indication: Product used for unknown indication
  4. 25C-NBOMe [Concomitant]
     Indication: Product used for unknown indication
  5. 5-MeO-DiPT [Concomitant]
     Indication: Product used for unknown indication

REACTIONS (2)
  - Drug abuse [Fatal]
  - Abnormal behaviour [Fatal]
